FAERS Safety Report 19741144 (Version 1)
Quarter: 2021Q3

REPORT INFORMATION
  Report Type: Spontaneous
  Country: US (occurrence: US)
  Receive Date: 20210824
  Receipt Date: 20210824
  Transmission Date: 20211014
  Serious: No
  Sender: FDA-Public Use
  Company Number: US-DRREDDYS-SPO/USA/21/0139172

PATIENT
  Age: 50 Year
  Sex: Male
  Weight: 112.5 kg

DRUGS (1)
  1. FEXOFENADINE HCL [Suspect]
     Active Substance: FEXOFENADINE HYDROCHLORIDE
     Indication: HYPERSENSITIVITY
     Dosage: 1 TABLET DAILY WHEN REQUIRED
     Dates: start: 2019

REACTIONS (2)
  - Expired product administered [Unknown]
  - Accidental exposure to product packaging [Unknown]
